FAERS Safety Report 18848800 (Version 1)
Quarter: 2021Q1

REPORT INFORMATION
  Report Type: Spontaneous
  Country: CN (occurrence: CN)
  Receive Date: 20210205
  Receipt Date: 20210205
  Transmission Date: 20210419
  Serious: Yes (Hospitalization)
  Sender: FDA-Public Use
  Company Number: NVSC2021CN023415

PATIENT
  Age: 19 Year
  Sex: Male
  Weight: 45 kg

DRUGS (2)
  1. TEGRETOL [Suspect]
     Active Substance: CARBAMAZEPINE
     Indication: EXTRAPYRAMIDAL DISORDER
     Dosage: 100 MG, QD
     Route: 048
     Dates: start: 20201205, end: 20201212
  2. ARIPIPRAZOLE. [Suspect]
     Active Substance: ARIPIPRAZOLE
     Indication: EXTRAPYRAMIDAL DISORDER
     Dosage: 15 MG, QD
     Route: 048
     Dates: start: 20201205, end: 20201212

REACTIONS (2)
  - Pruritus [Recovering/Resolving]
  - Dermatitis allergic [Recovering/Resolving]

NARRATIVE: CASE EVENT DATE: 20201212
